FAERS Safety Report 9690567 (Version 2)
Quarter: 2013Q4

REPORT INFORMATION
  Report Type: Spontaneous
  Country: GB (occurrence: GB)
  Receive Date: 20131115
  Receipt Date: 20131115
  Transmission Date: 20140711
  Serious: Yes (Other)
  Sender: FDA-Public Use
  Company Number: PHFR2004GB04441

PATIENT
  Age: 26 Year
  Sex: Female

DRUGS (3)
  1. CLOZARIL [Suspect]
     Indication: SCHIZOPHRENIA
     Dosage: 400 MG/DAY
     Route: 048
     Dates: start: 20000825
  2. CLOZARIL [Suspect]
     Route: 048
     Dates: start: 20091014
  3. IRON SULFATE [Concomitant]
     Indication: ANAEMIA
     Dosage: 200 MG/DAY
     Route: 048

REACTIONS (7)
  - Haemoglobin decreased [Not Recovered/Not Resolved]
  - Mean cell volume decreased [Not Recovered/Not Resolved]
  - Mean cell haemoglobin decreased [Unknown]
  - Platelet count increased [Recovered/Resolved]
  - Eosinophil count decreased [Recovering/Resolving]
  - White blood cell count decreased [Recovered/Resolved]
  - Neutrophil count decreased [Recovered/Resolved]
